FAERS Safety Report 4796346-8 (Version None)
Quarter: 2005Q4

REPORT INFORMATION
  Report Type: 
  Country: None (occurrence: None)
  Receive Date: 20051007
  Receipt Date: 20050927
  Transmission Date: 20060501
  Serious: Yes (Hospitalization, Other)
  Sender: FDA-Public Use
  Company Number: HQWYE568521SEP05

PATIENT
  Age: 21 Month
  Sex: Male

DRUGS (3)
  1. CHILDREN'S ADVIL [Suspect]
     Indication: PYREXIA
     Dosage: ORAL
     Route: 048
     Dates: start: 20041130, end: 20041130
  2. PREVENAR (PNEUMO 7-VAL CONJ VAC (DIPHTHERIA CRM 197) [Concomitant]
  3. DOLIPRANE (PARACETAMOL) [Concomitant]

REACTIONS (6)
  - ALANINE AMINOTRANSFERASE INCREASED [None]
  - ASPARTATE AMINOTRANSFERASE INCREASED [None]
  - C-REACTIVE PROTEIN INCREASED [None]
  - DRUG INEFFECTIVE [None]
  - KAWASAKI'S DISEASE [None]
  - LABORATORY TEST ABNORMAL [None]
